FAERS Safety Report 11478166 (Version 1)
Quarter: 2015Q3

REPORT INFORMATION
  Report Type: Spontaneous
  Country: CA (occurrence: CA)
  Receive Date: 20150909
  Receipt Date: 20150909
  Transmission Date: 20151125
  Serious: Yes (Disabling)
  Sender: FDA-Public Use
  Company Number: CA-TEVA-591873ACC

PATIENT
  Age: 15 Year
  Sex: Male
  Weight: 79 kg

DRUGS (22)
  1. ETOPOSIDE INJECTION, USP [Concomitant]
     Active Substance: ETOPOSIDE
  2. CETIRIZINE [Concomitant]
     Active Substance: CETIRIZINE HYDROCHLORIDE
  3. CYCLOPHOSPHAMIDE. [Concomitant]
     Active Substance: CYCLOPHOSPHAMIDE
  4. METOCLOPRAMIDE. [Concomitant]
     Active Substance: METOCLOPRAMIDE
  5. PREDNISONE. [Concomitant]
     Active Substance: PREDNISONE
  6. ALLOPURINOL. [Concomitant]
     Active Substance: ALLOPURINOL
  7. DIPHENHYDRAMINE. [Concomitant]
     Active Substance: DIPHENHYDRAMINE
  8. DOCUSATE SODIUM. [Concomitant]
     Active Substance: DOCUSATE SODIUM
  9. GRANULOCYTE COLONY STIMULATING FACTOR (G-CSF) [Concomitant]
  10. LORAZEPAM. [Concomitant]
     Active Substance: LORAZEPAM
  11. TIMENTIN [Concomitant]
     Active Substance: CLAVULANATE POTASSIUM\TICARCILLIN DISODIUM
     Route: 042
  12. TRIMETHOPRIM-SULFAMETHOXAZOLE [Concomitant]
     Active Substance: SULFAMETHOXAZOLE\TRIMETHOPRIM
  13. VINCRISTINE SULFATE INJECTION USP [Suspect]
     Active Substance: VINCRISTINE SULFATE
     Indication: HODGKIN^S DISEASE
     Route: 042
  14. ONDANSETRON [Concomitant]
     Active Substance: ONDANSETRON
  15. ACETAMINOPHEN. [Concomitant]
     Active Substance: ACETAMINOPHEN
  16. CELEBREX [Concomitant]
     Active Substance: CELECOXIB
  17. DIMENHYDRINATE. [Concomitant]
     Active Substance: DIMENHYDRINATE
  18. DOXORUBICIN HYDROCHLORIDE INJECTION [Concomitant]
     Active Substance: DOXORUBICIN HYDROCHLORIDE
  19. NAPROXEN. [Concomitant]
     Active Substance: NAPROXEN
  20. CODEINE [Concomitant]
     Active Substance: CODEINE
  21. TOBRAMYCIN INJECTION USP [Concomitant]
  22. BLEOMYCIN SULPHATE FOR INJECTION USP [Concomitant]

REACTIONS (3)
  - Neuropathy peripheral [Unknown]
  - Arthralgia [Unknown]
  - Muscular weakness [Unknown]
